FAERS Safety Report 5427726-5 (Version None)
Quarter: 2007Q3

REPORT INFORMATION
  Report Type: 
  Country: None (occurrence: None)
  Receive Date: 20070823
  Receipt Date: 20070818
  Transmission Date: 20080115
  Serious: Yes (Death, Hospitalization)
  Sender: FDA-Public Use
  Company Number: 163-21880-07081157

PATIENT
  Age: 94 Year
  Sex: Female
  Weight: 85.9 kg

DRUGS (1)
  1. REVLIMID [Suspect]
     Indication: ACUTE MYELOID LEUKAEMIA
     Dosage: 50 MG, QD FOR MAX 28 DAYS, ORAL
     Route: 048
     Dates: start: 20070802, end: 20070806

REACTIONS (3)
  - DEPRESSED LEVEL OF CONSCIOUSNESS [None]
  - PULMONARY OEDEMA [None]
  - THROMBOCYTOPENIA [None]
